FAERS Safety Report 7658787-0 (Version None)
Quarter: 2011Q3

REPORT INFORMATION
  Report Type: 
  Country: None (occurrence: None)
  Receive Date: 20110805
  Receipt Date: 20110805
  Transmission Date: 20111222
  Serious: Yes (Other)
  Sender: FDA-Public Use
  Company Number: None

PATIENT
  Weight: 79.378 kg

DRUGS (1)
  1. CLINDAMYCIN HCL [Suspect]
     Indication: TOOTH ABSCESS
     Dosage: 1 CAPSULE
     Route: 048
     Dates: start: 20110609, end: 20110615

REACTIONS (1)
  - SENSATION OF HEAVINESS [None]
